FAERS Safety Report 9781766 (Version 5)
Quarter: 2014Q2

REPORT INFORMATION
  Report Type: Spontaneous
  Country: JP (occurrence: JP)
  Receive Date: 20131225
  Receipt Date: 20140626
  Transmission Date: 20141212
  Serious: Yes (Death, Life-Threatening, Other)
  Sender: FDA-Public Use
  Company Number: JP-ROCHE-1321256

PATIENT
  Age: 62 Year
  Sex: Female

DRUGS (3)
  1. HERCEPTIN [Suspect]
     Indication: BREAST CANCER
     Route: 041
     Dates: start: 201201, end: 20131121
  2. HERCEPTIN [Suspect]
     Indication: BREAST CANCER
     Route: 041
     Dates: start: 20131121, end: 20131121
  3. PERJETA [Suspect]
     Indication: BREAST CANCER
     Route: 041
     Dates: start: 20131121, end: 20131121

REACTIONS (6)
  - Tumour lysis syndrome [Not Recovered/Not Resolved]
  - General physical health deterioration [Fatal]
  - White blood cell count increased [Unknown]
  - Infection [Recovering/Resolving]
  - Septic shock [Fatal]
  - Arrhythmia [Unknown]
